FAERS Safety Report 8702026 (Version 4)
Quarter: 2013Q1

REPORT INFORMATION
  Report Type: Spontaneous
  Country: US (occurrence: US)
  Receive Date: 20120803
  Receipt Date: 20130123
  Transmission Date: 20140127
  Serious: Yes (Hospitalization, Other)
  Sender: FDA-Public Use
  Company Number: US-JNJFOC-20120714311

PATIENT
  Age: 51 None
  Sex: Female
  Weight: 99.79 kg

DRUGS (17)
  1. NUCYNTA [Suspect]
     Indication: ARTHRALGIA
     Route: 048
  2. NUCYNTA ER [Suspect]
     Indication: ARTHRALGIA
     Dosage: 3 TIMES A DAY
     Route: 048
     Dates: start: 2012, end: 2012
  3. NUCYNTA ER [Suspect]
     Indication: ARTHRALGIA
     Dosage: TWICE A DAY
     Route: 048
     Dates: start: 2012, end: 2012
  4. NUCYNTA ER [Suspect]
     Indication: ARTHRALGIA
     Route: 048
     Dates: start: 201212
  5. NUCYNTA IR [Suspect]
     Indication: BREAKTHROUGH PAIN
     Dosage: 4 TIMES A DAY AS NEEDED
     Route: 048
     Dates: start: 2012, end: 2012
  6. NUCYNTA IR [Suspect]
     Indication: BREAKTHROUGH PAIN
     Dosage: 4 OR 5 TIMES A DAY
     Route: 048
     Dates: start: 2012, end: 2012
  7. NUCYNTA IR [Suspect]
     Indication: BREAKTHROUGH PAIN
     Dosage: 3 TIMES A DAY
     Route: 048
     Dates: start: 2012
  8. TIZANIDINE [Suspect]
     Indication: SLEEP DISORDER THERAPY
     Route: 048
     Dates: start: 2012
  9. ZOLOFT [Interacting]
     Indication: MAJOR DEPRESSION
     Route: 048
  10. UNKNOWN MEDICATION [Suspect]
     Indication: PAIN
     Route: 048
     Dates: end: 201207
  11. OPANA [Suspect]
     Indication: ARTHRALGIA
     Route: 048
  12. SENOKOT [Concomitant]
     Indication: CONSTIPATION
     Dosage: EVERY OTHER DAY
     Route: 048
  13. LISINOPRIL [Concomitant]
     Indication: BLOOD PRESSURE
     Route: 048
  14. ATORVASTATIN [Concomitant]
     Indication: BLOOD CHOLESTEROL
     Route: 048
  15. LORAZEPAM [Concomitant]
     Indication: PRODUCT USED FOR UNKNOWN INDICATION
     Dosage: AS NEEDED
     Route: 048
  16. PREDNISONE [Concomitant]
     Indication: PRODUCT USED FOR UNKNOWN INDICATION
     Route: 065
  17. ENBREL [Concomitant]
     Indication: PSORIATIC ARTHROPATHY
     Dosage: TWICE A WEEK
     Route: 065

REACTIONS (13)
  - Drug interaction [Unknown]
  - Constipation [Recovered/Resolved]
  - Drug effect decreased [Recovered/Resolved]
  - Blood pressure decreased [Recovered/Resolved]
  - Psoriatic arthropathy [Not Recovered/Not Resolved]
  - Drug ineffective [Recovered/Resolved]
  - Withdrawal syndrome [Recovered/Resolved]
  - Adverse event [Unknown]
  - Pyrexia [Recovered/Resolved]
  - Pain [Not Recovered/Not Resolved]
  - Ureteral disorder [Recovered/Resolved]
  - Urinary retention [Recovered/Resolved]
  - Headache [Not Recovered/Not Resolved]
